FAERS Safety Report 18439148 (Version 4)
Quarter: 2020Q4

REPORT INFORMATION
  Report Type: Report from Study
  Country: BR (occurrence: BR)
  Receive Date: 20201028
  Receipt Date: 20201204
  Transmission Date: 20210114
  Serious: Yes (Death, Life-Threatening, Other)
  Sender: FDA-Public Use
  Company Number: BR-GILEAD-2020-0495975

PATIENT
  Age: 20 Year
  Sex: Male
  Weight: 62 kg

DRUGS (33)
  1. PRECEDEX [Concomitant]
     Active Substance: DEXMEDETOMIDINE HYDROCHLORIDE
     Indication: ANXIETY
  2. LACTATED RINGERS SOLUTION [Concomitant]
     Active Substance: CALCIUM CHLORIDE\POTASSIUM CHLORIDE\SODIUM CHLORIDE\SODIUM LACTATE
  3. CEFTRIAXONE. [Concomitant]
     Active Substance: CEFTRIAXONE
     Indication: INFECTION PROPHYLAXIS
     Dosage: 2 G, QD
     Route: 065
  4. ENOXAPARIN [Concomitant]
     Active Substance: ENOXAPARIN
     Indication: THROMBOSIS PROPHYLAXIS
     Dosage: 40 MG, QD
  5. QUETIAPINE. [Concomitant]
     Active Substance: QUETIAPINE
  6. ADRENALINE [EPINEPHRINE] [Concomitant]
     Active Substance: EPINEPHRINE
  7. CODEINE [Concomitant]
     Active Substance: CODEINE
     Indication: COUGH
     Dosage: 5 ML, QD
  8. ROCURONIUM [Concomitant]
     Active Substance: ROCURONIUM BROMIDE
  9. METHYLPREDNISOLONE. [Concomitant]
     Active Substance: METHYLPREDNISOLONE
  10. VANCOMYCIN [Concomitant]
     Active Substance: VANCOMYCIN
  11. PROPOFOL. [Concomitant]
     Active Substance: PROPOFOL
  12. OMEPRAZOLE. [Concomitant]
     Active Substance: OMEPRAZOLE
     Indication: PROPHYLAXIS AGAINST GASTROINTESTINAL ULCER
     Dates: start: 20200902
  13. AZITHROMYCIN ANHYDROUS. [Concomitant]
     Active Substance: AZITHROMYCIN ANHYDROUS
     Indication: INFECTION PROPHYLAXIS
     Dosage: 500 MG, QD
  14. BROMOPRIDE [Concomitant]
     Active Substance: BROMOPRIDE
     Dosage: 10 MG, QD
  15. LIDOCAINE. [Concomitant]
     Active Substance: LIDOCAINE
  16. INSULIN [Concomitant]
     Active Substance: INSULIN NOS
  17. HALDOL [Concomitant]
     Active Substance: HALOPERIDOL
  18. THIAMINE. [Concomitant]
     Active Substance: THIAMINE
  19. CIMETIDINE [Concomitant]
     Active Substance: CIMETIDINE
  20. DEXTROKETAMINE [Concomitant]
  21. NORADRENALINE (NORPINEPHRINE) [Concomitant]
     Active Substance: NOREPINEPHRINE
  22. METHADONE [Concomitant]
     Active Substance: METHADONE HYDROCHLORIDE
  23. DORMONID [MIDAZOLAM] [Concomitant]
  24. LINEZOLID. [Concomitant]
     Active Substance: LINEZOLID
  25. REMDESIVIR. [Suspect]
     Active Substance: REMDESIVIR
     Indication: COVID-19 PNEUMONIA
     Dosage: UNK
     Route: 042
     Dates: start: 20200902
  26. MORPHINE [Concomitant]
     Active Substance: MORPHINE
  27. DEXAMETHASONE. [Concomitant]
     Active Substance: DEXAMETHASONE
     Indication: COVID-19 PNEUMONIA
     Dosage: 6 MG, QD
  28. SUCCINYLCHOLINE [SUXAMETHONIUM] [Concomitant]
     Active Substance: SUCCINYLCHOLINE
  29. FENTANYL. [Concomitant]
     Active Substance: FENTANYL
  30. SCOPOLAMINE [HYOSCINE] [Concomitant]
     Active Substance: SCOPOLAMINE
  31. TOCILIZUMAB. [Suspect]
     Active Substance: TOCILIZUMAB
     Indication: COVID-19 PNEUMONIA
     Dosage: UNK
     Route: 042
     Dates: start: 20200902
  32. DIPYRONE [Concomitant]
     Active Substance: DIPYRONE
     Indication: COVID-19
     Dosage: 500 MG, QD
  33. ENCRISE [Concomitant]

REACTIONS (5)
  - Bacterial infection [Not Recovered/Not Resolved]
  - Obstructive shock [Fatal]
  - Pneumothorax [Not Recovered/Not Resolved]
  - Septic shock [Fatal]
  - Pneumonia [Not Recovered/Not Resolved]

NARRATIVE: CASE EVENT DATE: 20200916
